FAERS Safety Report 9228923 (Version 1)
Quarter: 2013Q2

REPORT INFORMATION
  Report Type: Spontaneous
  Country: US (occurrence: US)
  Receive Date: 20130412
  Receipt Date: 20130412
  Transmission Date: 20140414
  Serious: Yes (Hospitalization, Disabling)
  Sender: FDA-Public Use
  Company Number: GXBR2013US000856

PATIENT
  Sex: Female

DRUGS (1)
  1. METHOTREXATE SODIUM [Suspect]
     Indication: CHORIOCARCINOMA
     Dosage: UNK MG, UNK
     Route: 042
     Dates: start: 20100731

REACTIONS (2)
  - Cerebrovascular accident [Unknown]
  - Pneumothorax [Unknown]
